FAERS Safety Report 12173746 (Version 1)
Quarter: 2016Q1

REPORT INFORMATION
  Report Type: Spontaneous
  Country: US (occurrence: None)
  Receive Date: 20160311
  Receipt Date: 20160311
  Transmission Date: 20160526
  Serious: Yes (Other)
  Sender: FDA-Public Use
  Company Number: None

PATIENT
  Age: 24 Year
  Sex: Male
  Weight: 79.38 kg

DRUGS (6)
  1. DILANTIN [Concomitant]
     Active Substance: PHENYTOIN
  2. LAMOTRIGINE. [Concomitant]
     Active Substance: LAMOTRIGINE
  3. MEN^S MULTIVITAMIN [Concomitant]
  4. OMEPRAZOLE. [Concomitant]
     Active Substance: OMEPRAZOLE
  5. FLEXERIL [Suspect]
     Active Substance: CYCLOBENZAPRINE HYDROCHLORIDE
     Indication: MUSCLE SPASMS
     Dosage: 1 PILL THREE TIMES DAILY  TAKEN BY MOUTH
     Route: 048
     Dates: start: 20160213, end: 20160217
  6. VITAMIN C [Concomitant]
     Active Substance: ASCORBIC ACID

REACTIONS (2)
  - Seizure [None]
  - Drug level decreased [None]

NARRATIVE: CASE EVENT DATE: 20160217
